FAERS Safety Report 4743881-4 (Version None)
Quarter: 2005Q3

REPORT INFORMATION
  Report Type: 
  Country: None (occurrence: None)
  Receive Date: 20050809
  Receipt Date: 20050415
  Transmission Date: 20060218
  Serious: Yes (Other)
  Sender: FDA-Public Use
  Company Number: 2005059215

PATIENT
  Sex: Male

DRUGS (1)
  1. GENOTROPIN [Suspect]
     Indication: ILL-DEFINED DISORDER

REACTIONS (3)
  - COLITIS ULCERATIVE [None]
  - CROHN'S DISEASE [None]
  - MELAENA [None]
